FAERS Safety Report 9459687 (Version 1)
Quarter: 2013Q3

REPORT INFORMATION
  Report Type: Spontaneous
  Country: CN (occurrence: CN)
  Receive Date: 20130815
  Receipt Date: 20130815
  Transmission Date: 20140515
  Serious: Yes (Other)
  Sender: FDA-Public Use
  Company Number: CN-PERRIGO-13CN008207

PATIENT
  Age: 39 Year
  Sex: Female

DRUGS (3)
  1. GENTAMICIN SULFATE RX 0.1% 1A5 [Suspect]
     Indication: ANTIBIOTIC PROPHYLAXIS
     Dosage: UNK, UNK
     Route: 061
     Dates: start: 200501
  2. CEFTAZIDIME [Suspect]
     Indication: PSEUDOMONAS INFECTION
     Dosage: UNK, UNK
     Route: 065
     Dates: start: 2004
  3. CIPROFLOXACIN [Suspect]
     Indication: PSEUDOMONAS INFECTION
     Route: 065
     Dates: start: 2004

REACTIONS (4)
  - Mycobacterial peritonitis [Recovered/Resolved with Sequelae]
  - Localised intraabdominal fluid collection [Recovered/Resolved with Sequelae]
  - Pseudomonas infection [Recovered/Resolved]
  - Mycobacterium abscessus infection [Recovered/Resolved with Sequelae]
